FAERS Safety Report 4713907-2 (Version None)
Quarter: 2005Q3

REPORT INFORMATION
  Report Type: 
  Country: None (occurrence: None)
  Receive Date: 20050712
  Receipt Date: 20050630
  Transmission Date: 20060218
  Serious: Yes (Hospitalization, Other)
  Sender: FDA-Public Use
  Company Number: 2005095835

PATIENT
  Sex: Female
  Weight: 63.5036 kg

DRUGS (2)
  1. GEODON [Suspect]
     Indication: ILL-DEFINED DISORDER
     Dosage: UNKNOWN
     Route: 065
  2. XANAX [Concomitant]

REACTIONS (2)
  - AFFECTIVE DISORDER [None]
  - MENTAL DISORDER [None]
